FAERS Safety Report 24774631 (Version 1)
Quarter: 2024Q4

REPORT INFORMATION
  Report Type: Report from Study
  Country: FR (occurrence: FR)
  Receive Date: 20241226
  Receipt Date: 20241226
  Transmission Date: 20250114
  Serious: Yes (Hospitalization, Other)
  Sender: JOHNSON AND JOHNSON
  Company Number: FR-JNJFOC-20240248777

PATIENT
  Age: 68 Year
  Sex: Female
  Weight: 84 kg

DRUGS (17)
  1. SELEXIPAG [Suspect]
     Active Substance: SELEXIPAG
     Indication: Product used for unknown indication
     Route: 048
     Dates: start: 20240214
  2. SELEXIPAG [Suspect]
     Active Substance: SELEXIPAG
     Route: 048
     Dates: start: 20240215
  3. SELEXIPAG [Suspect]
     Active Substance: SELEXIPAG
     Route: 048
     Dates: start: 20240222
  4. SELEXIPAG [Suspect]
     Active Substance: SELEXIPAG
     Route: 048
     Dates: start: 20240229
  5. SELEXIPAG [Suspect]
     Active Substance: SELEXIPAG
     Route: 048
     Dates: start: 20240307
  6. SELEXIPAG [Suspect]
     Active Substance: SELEXIPAG
     Route: 048
     Dates: start: 20240319
  7. SELEXIPAG [Suspect]
     Active Substance: SELEXIPAG
     Route: 048
     Dates: start: 20240327
  8. SELEXIPAG [Suspect]
     Active Substance: SELEXIPAG
     Route: 048
     Dates: start: 20240409
  9. SELEXIPAG [Suspect]
     Active Substance: SELEXIPAG
     Route: 048
     Dates: start: 20240416
  10. BOSENTAN [Concomitant]
     Active Substance: BOSENTAN
     Indication: Pulmonary arterial hypertension
  11. TADALAFIL [Concomitant]
     Active Substance: TADALAFIL
     Indication: Pulmonary arterial hypertension
  12. ELIQUIS [Concomitant]
     Active Substance: APIXABAN
     Indication: Anticoagulant therapy
  13. COUMADIN [Concomitant]
     Active Substance: WARFARIN SODIUM
     Indication: Anticoagulant therapy
     Route: 048
     Dates: start: 20240228
  14. COUMADIN [Concomitant]
     Active Substance: WARFARIN SODIUM
     Dosage: 1.5 TABS EVERY 2 DAYS INSTEAD OF 1 TAB EVERY DAY
     Route: 048
  15. COUMADIN [Concomitant]
     Active Substance: WARFARIN SODIUM
     Dosage: ON ODD DAYS
     Route: 048
  16. COUMADIN [Concomitant]
     Active Substance: WARFARIN SODIUM
     Dosage: ON EVEN DAYS
     Route: 048
  17. COUMADIN [Concomitant]
     Active Substance: WARFARIN SODIUM
     Route: 048
     Dates: start: 20240412

REACTIONS (13)
  - Epilepsy [Recovered/Resolved]
  - Hospitalisation [Unknown]
  - Abdominal pain [Not Recovered/Not Resolved]
  - Erythema [Not Recovered/Not Resolved]
  - Headache [Not Recovered/Not Resolved]
  - Dyspnoea exertional [Not Recovered/Not Resolved]
  - Fatigue [Recovered/Resolved]
  - Prothrombin level abnormal [Not Recovered/Not Resolved]
  - Dermatitis contact [Not Recovered/Not Resolved]
  - Myalgia [Unknown]
  - Nasal obstruction [Recovered/Resolved]
  - Diarrhoea [Not Recovered/Not Resolved]
  - Injection site infection [Not Recovered/Not Resolved]

NARRATIVE: CASE EVENT DATE: 20240214
